FAERS Safety Report 5708056-0 (Version None)
Quarter: 2008Q2

REPORT INFORMATION
  Report Type: 
  Country: None (occurrence: None)
  Receive Date: 20080417
  Receipt Date: 20080417
  Transmission Date: 20081010
  Serious: Yes (Death, Hospitalization)
  Sender: FDA-Public Use
  Company Number: None

PATIENT
  Sex: Female
  Weight: 54.8852 kg

DRUGS (2)
  1. HEPARIN [Suspect]
     Indication: RENAL FAILURE CHRONIC
     Dosage: 4 ML EVERY OTHER NIGHT
     Dates: start: 20070701, end: 20080201
  2. HEPARIN [Suspect]

REACTIONS (11)
  - ABDOMINAL PAIN UPPER [None]
  - BURNING SENSATION [None]
  - CHEST PAIN [None]
  - DIZZINESS [None]
  - DYSPHAGIA [None]
  - HEADACHE [None]
  - HEART RATE INCREASED [None]
  - HYPOTENSION [None]
  - MYOCARDIAL INFARCTION [None]
  - SENSORY LOSS [None]
  - SYNCOPE [None]
